FAERS Safety Report 19024100 (Version 1)
Quarter: 2021Q1

REPORT INFORMATION
  Report Type: Spontaneous
  Country: JP (occurrence: JP)
  Receive Date: 20210317
  Receipt Date: 20210317
  Transmission Date: 20210420
  Serious: Yes (Death, Hospitalization, Other)
  Sender: FDA-Public Use
  Company Number: JP-PFIZER INC-2020488161

PATIENT
  Age: 79 Year
  Sex: Male
  Weight: 60 kg

DRUGS (12)
  1. BLINCYTO [Suspect]
     Active Substance: BLINATUMOMAB
     Dosage: 28 UG, 1X/DAY
     Route: 041
     Dates: start: 20200713, end: 20200729
  2. BESPONSA [Suspect]
     Active Substance: INOTUZUMAB OZOGAMICIN
     Dosage: UNK
  3. BLINCYTO [Suspect]
     Active Substance: BLINATUMOMAB
     Dosage: 35 UG, 1X/DAY
     Route: 042
     Dates: start: 20200924
  4. BLINCYTO [Suspect]
     Active Substance: BLINATUMOMAB
     Dosage: 9 UG, 1X/DAY
     Route: 041
     Dates: start: 20210203, end: 20210204
  5. BLINCYTO [Suspect]
     Active Substance: BLINATUMOMAB
     Indication: ACUTE LYMPHOCYTIC LEUKAEMIA RECURRENT
     Dosage: 9 UG, 1X/DAY
     Route: 041
     Dates: start: 20200702, end: 202007
  6. BLINCYTO [Suspect]
     Active Substance: BLINATUMOMAB
     Dosage: 28 UG, 1X/DAY
     Route: 041
     Dates: start: 20200709, end: 20200729
  7. BLINCYTO [Suspect]
     Active Substance: BLINATUMOMAB
     Dosage: 28 UG, 1X/DAY
     Route: 041
     Dates: start: 20210201
  8. BESPONSA [Suspect]
     Active Substance: INOTUZUMAB OZOGAMICIN
     Dosage: UNK
     Dates: start: 20200929, end: 20201015
  9. BESPONSA [Suspect]
     Active Substance: INOTUZUMAB OZOGAMICIN
     Dosage: 0.8 MG, 1X/DAY
     Dates: start: 20200813, end: 2020
  10. BLINCYTO [Suspect]
     Active Substance: BLINATUMOMAB
     Dosage: 9 UG, 1X/DAY
     Route: 041
     Dates: start: 20200702, end: 20200708
  11. DEXAMETHASONE. [Concomitant]
     Active Substance: DEXAMETHASONE
     Dosage: UNK
     Dates: start: 20200629
  12. BESPONSA [Suspect]
     Active Substance: INOTUZUMAB OZOGAMICIN
     Indication: ACUTE LYMPHOCYTIC LEUKAEMIA
     Dosage: 1.3 MG, DAILY
     Dates: start: 20200806, end: 20200806

REACTIONS (6)
  - Renal failure [Fatal]
  - Tumour lysis syndrome [Fatal]
  - Venoocclusive liver disease [Not Recovered/Not Resolved]
  - Neoplasm progression [Unknown]
  - Cytokine release syndrome [Not Recovered/Not Resolved]
  - Respiratory failure [Unknown]

NARRATIVE: CASE EVENT DATE: 20200729
